FAERS Safety Report 10595095 (Version 1)
Quarter: 2014Q4

REPORT INFORMATION
  Report Type: Spontaneous
  Country: US (occurrence: US)
  Receive Date: 20141120
  Receipt Date: 20141120
  Transmission Date: 20150529
  Serious: No
  Sender: FDA-Public Use
  Company Number: US-B.I. PHARMACEUTICALS,INC./RIDGEFIELD-2014-BI-54587BP

PATIENT
  Sex: Male
  Weight: 94.35 kg

DRUGS (15)
  1. PRADAXA [Suspect]
     Active Substance: DABIGATRAN ETEXILATE MESYLATE
     Indication: ATRIAL FIBRILLATION
  2. FLOVENT [Concomitant]
     Active Substance: FLUTICASONE PROPIONATE
     Indication: ASTHMA
     Dosage: 4 PUF
     Route: 055
     Dates: start: 1994
  3. LANTUS LONE STAR [Concomitant]
     Indication: TYPE 2 DIABETES MELLITUS
     Dosage: 32 U
     Route: 058
     Dates: start: 2010
  4. METFORMIN [Concomitant]
     Active Substance: METFORMIN HYDROCHLORIDE
     Indication: TYPE 2 DIABETES MELLITUS
     Dosage: 4 ANZ
     Route: 048
     Dates: start: 2010
  5. PRADAXA [Suspect]
     Active Substance: DABIGATRAN ETEXILATE MESYLATE
     Indication: DIABETES MELLITUS
     Dosage: 300 MG
     Route: 048
     Dates: start: 2012
  6. ATIVAN [Concomitant]
     Active Substance: LORAZEPAM
     Indication: HYPERTENSION
     Dosage: 1.5 MG
     Route: 048
     Dates: start: 2004
  7. NORCO [Concomitant]
     Active Substance: ACETAMINOPHEN\HYDROCODONE BITARTRATE
     Indication: BACK PAIN
     Dosage: STRENGTH: 5/325; DAILY DOSE:20/1300
     Route: 048
     Dates: start: 2004
  8. ALBUTEROL. [Concomitant]
     Active Substance: ALBUTEROL
     Indication: ASTHMA
     Dosage: 8 PUF
     Route: 065
     Dates: start: 1994
  9. FLEXARIL [Concomitant]
     Indication: ARTHRITIS
  10. FLEXARIL [Concomitant]
     Indication: SPINAL PAIN
     Dosage: 30 MG
     Route: 048
     Dates: start: 2004
  11. FLEXARIL [Concomitant]
     Indication: INTERVERTEBRAL DISC PROTRUSION
  12. TAMBOCOR [Concomitant]
     Active Substance: FLECAINIDE ACETATE
     Indication: ATRIAL FIBRILLATION
     Dosage: 100 MG
     Route: 048
     Dates: start: 2004
  13. ATIVAN [Concomitant]
     Active Substance: LORAZEPAM
     Indication: ANXIETY
  14. ZOCOR [Concomitant]
     Active Substance: SIMVASTATIN
     Indication: BLOOD CHOLESTEROL INCREASED
     Dosage: 20 MG
     Route: 048
     Dates: start: 2009
  15. CARDIZEM [Concomitant]
     Active Substance: DILTIAZEM HYDROCHLORIDE
     Indication: ATRIAL FIBRILLATION
     Dosage: 120 MG
     Route: 048
     Dates: start: 2004

REACTIONS (1)
  - Off label use [Unknown]
